FAERS Safety Report 12371634 (Version 1)
Quarter: 2016Q2

REPORT INFORMATION
  Report Type: Spontaneous
  Country: FI (occurrence: FI)
  Receive Date: 20160516
  Receipt Date: 20160516
  Transmission Date: 20160815
  Serious: Yes (Death)
  Sender: FDA-Public Use
  Company Number: PHHY2016FI061856

PATIENT
  Age: 62 Year
  Sex: Male

DRUGS (1)
  1. TAFINLAR [Suspect]
     Active Substance: DABRAFENIB MESYLATE
     Indication: METASTATIC MALIGNANT MELANOMA
     Dosage: 100 MG, BID
     Route: 065
     Dates: start: 201603

REACTIONS (5)
  - General physical health deterioration [Fatal]
  - Malignant neoplasm progression [Fatal]
  - Drug ineffective [Unknown]
  - Metastases to central nervous system [Fatal]
  - Metastases to meninges [Fatal]
